FAERS Safety Report 14250577 (Version 1)
Quarter: 2017Q4

REPORT INFORMATION
  Report Type: Spontaneous
  Country: US (occurrence: US)
  Receive Date: 20171205
  Receipt Date: 20171205
  Transmission Date: 20180321
  Serious: Yes (Other)
  Sender: FDA-Public Use
  Company Number: None

PATIENT
  Age: 62 Year
  Sex: Female
  Weight: 57.15 kg

DRUGS (5)
  1. PREMARIN [Concomitant]
     Active Substance: ESTROGENS, CONJUGATED
  2. FLUOXETINE HCI 10 MG [Suspect]
     Active Substance: FLUOXETINE HYDROCHLORIDE
     Indication: SERUM SEROTONIN DECREASED
     Dosage: ?          QUANTITY:1 TABLET(S);?
     Route: 048
  3. ZYRTEC [Concomitant]
     Active Substance: CETIRIZINE HYDROCHLORIDE
  4. LOSARTAN. [Concomitant]
     Active Substance: LOSARTAN
  5. KIRKLAND 55+ DAILY VITAMIN [Concomitant]

REACTIONS (6)
  - Depression [None]
  - Crying [None]
  - Fear [None]
  - Anxiety [None]
  - Product quality issue [None]
  - Suicidal ideation [None]

NARRATIVE: CASE EVENT DATE: 20171101
